FAERS Safety Report 11675464 (Version 1)
Quarter: 2015Q4

REPORT INFORMATION
  Report Type: Spontaneous
  Country: US (occurrence: US)
  Receive Date: 20151027
  Receipt Date: 20151027
  Transmission Date: 20160304
  Serious: No
  Sender: FDA-Public Use
  Company Number: US-ELI_LILLY_AND_COMPANY-US201008009005

PATIENT
  Sex: Male

DRUGS (1)
  1. FORTEO [Suspect]
     Active Substance: TERIPARATIDE
     Indication: SPINAL FRACTURE
     Dosage: 20 UG, DAILY (1/D)
     Dates: start: 20100120

REACTIONS (3)
  - Gait disturbance [Unknown]
  - Crepitations [Unknown]
  - Feeling abnormal [Unknown]
